FAERS Safety Report 4759287-8 (Version None)
Quarter: 2005Q3

REPORT INFORMATION
  Report Type: 
  Country: None (occurrence: None)
  Receive Date: 20050826
  Receipt Date: 20050609
  Transmission Date: 20060218
  Serious: No
  Sender: FDA-Public Use
  Company Number: WAES 0506USA01543

PATIENT
  Age: 40 Year
  Sex: Female

DRUGS (2)
  1. ZETIA [Suspect]
     Indication: HYPERCHOLESTEROLAEMIA
     Dosage: 10 MG/DAILY/PO
     Route: 048
     Dates: start: 20050602
  2. VITAMINS (UNSPECIFIED) [Concomitant]

REACTIONS (3)
  - CHAPPED LIPS [None]
  - GINGIVAL DISCOLOURATION [None]
  - LIP DRY [None]
